FAERS Safety Report 9490568 (Version 1)
Quarter: 2013Q3

REPORT INFORMATION
  Report Type: Report from Study
  Country: JP (occurrence: JP)
  Receive Date: 20130830
  Receipt Date: 20130830
  Transmission Date: 20140515
  Serious: Yes (Death, Other)
  Sender: FDA-Public Use
  Company Number: JP-GENZYME-THYM-1004073

PATIENT
  Age: 72 Year
  Sex: Male
  Weight: 62 kg

DRUGS (7)
  1. THYMOGLOBULIN [Suspect]
     Indication: APLASTIC ANAEMIA
     Dosage: 225 MG, QD (ADMINISTERED OVER 16 HOURS AND 40 MINUTES)
     Route: 065
     Dates: start: 20120723, end: 20120727
  2. NEORAL [Concomitant]
     Indication: APLASTIC ANAEMIA
     Dosage: UNK
     Route: 065
     Dates: start: 20120114, end: 20120812
  3. NEORAL [Concomitant]
     Indication: DIABETES MELLITUS
  4. GRAN [Concomitant]
     Indication: APLASTIC ANAEMIA
     Dosage: UNK
     Route: 065
     Dates: start: 20120725, end: 20120813
  5. GRAN [Concomitant]
     Indication: DIABETES MELLITUS
  6. PRIMOBOLAN [Concomitant]
     Indication: APLASTIC ANAEMIA
     Dosage: UNK
     Route: 065
     Dates: start: 20120405, end: 20120812
  7. PRIMOBOLAN [Concomitant]
     Indication: DIABETES MELLITUS

REACTIONS (2)
  - Febrile neutropenia [Not Recovered/Not Resolved]
  - Pneumonia [Fatal]
